FAERS Safety Report 4906047-0 (Version None)
Quarter: 2006Q1

REPORT INFORMATION
  Report Type: 
  Country: None (occurrence: None)
  Receive Date: 20060207
  Receipt Date: 20060207
  Transmission Date: 20060701
  Serious: Yes (Hospitalization)
  Sender: FDA-Public Use
  Company Number: None

PATIENT
  Age: 21 Year
  Sex: Female
  Weight: 68.0396 kg

DRUGS (1)
  1. DIFFERIN [Suspect]
     Indication: ACNE
     Dosage: PEA-SIZED NIGHTLY TOP
     Route: 061
     Dates: start: 20050610, end: 20050930

REACTIONS (6)
  - BLOOD PRESSURE INCREASED [None]
  - BRAIN OEDEMA [None]
  - EYELID OEDEMA [None]
  - HEART RATE INCREASED [None]
  - HYPOAESTHESIA [None]
  - SIMILAR REACTION ON PREVIOUS EXPOSURE TO DRUG [None]
